FAERS Safety Report 7125905-2 (Version None)
Quarter: 2010Q4

REPORT INFORMATION
  Report Type: 
  Country: None (occurrence: None)
  Receive Date: 20101129
  Receipt Date: 20040311
  Transmission Date: 20110411
  Serious: Yes (Death)
  Sender: FDA-Public Use
  Company Number: AU-ROCHE-742273

PATIENT
  Sex: Female

DRUGS (3)
  1. XELODA [Suspect]
     Route: 065
  2. XELODA [Suspect]
     Dosage: THERAPY WITH REDUCED DOSAGE
     Route: 065
  3. TAXOTERE [Concomitant]

REACTIONS (1)
  - MALIGNANT NEOPLASM PROGRESSION [None]
